FAERS Safety Report 17847986 (Version 3)
Quarter: 2020Q2

REPORT INFORMATION
  Report Type: Spontaneous
  Country: US (occurrence: US)
  Receive Date: 20200601
  Receipt Date: 20200619
  Transmission Date: 20200714
  Serious: Yes (Death, Other)
  Sender: FDA-Public Use
  Company Number: US-GILEAD-2020-0469172

PATIENT
  Age: 92 Year
  Sex: Female
  Weight: 44 kg

DRUGS (8)
  1. MORPHINE [Concomitant]
     Active Substance: MORPHINE
  2. ATIVAN [Concomitant]
     Active Substance: LORAZEPAM
  3. HALDOL DECAN [Concomitant]
     Active Substance: HALOPERIDOL DECANOATE
  4. HEPARIN [Concomitant]
     Active Substance: HEPARIN SODIUM
  5. HYDROMORPHONE [Concomitant]
     Active Substance: HYDROMORPHONE
  6. UNASYN IM/IV [Concomitant]
  7. REMDESIVIR. [Suspect]
     Active Substance: REMDESIVIR
     Indication: COVID-19
     Dosage: UNK
     Route: 065
     Dates: start: 20200523, end: 20200526
  8. GLYCOPYRROLATE [GLYCOPYRRONIUM BROMIDE] [Concomitant]
     Active Substance: GLYCOPYRROLATE

REACTIONS (2)
  - Liver function test increased [Unknown]
  - Acute kidney injury [Fatal]

NARRATIVE: CASE EVENT DATE: 20200526
